FAERS Safety Report 8056541-1 (Version None)
Quarter: 2012Q1

REPORT INFORMATION
  Report Type: 
  Country: None (occurrence: None)
  Receive Date: 20120119
  Receipt Date: 20120112
  Transmission Date: 20120608
  Serious: Yes (Hospitalization)
  Sender: FDA-Public Use
  Company Number: US-SANOFI-AVENTIS-2012SA000275

PATIENT
  Age: 63 Year
  Sex: Male

DRUGS (13)
  1. METFORMIN HCL [Suspect]
  2. EZETIMIBE [Concomitant]
  3. INSULIN LISPRO [Suspect]
  4. LASIX [Suspect]
  5. ALL OTHER THERAPEUTIC PRODUCTS [Concomitant]
  6. INSULIN GLARGINE [Suspect]
  7. LISINOPRIL [Suspect]
  8. ACE INHIBITOR NOS [Concomitant]
  9. PLATELET AGGREGATION INHIBITORS [Concomitant]
  10. INVESTIGATIONAL DRUG [Suspect]
     Dates: start: 20101222
  11. ACETYLSALICYLIC ACID SRT [Concomitant]
  12. SERUMLIPIDREDUCING AGENTS [Concomitant]
  13. PLACEBO [Suspect]
     Dates: start: 20101222

REACTIONS (1)
  - RENAL FAILURE [None]
